FAERS Safety Report 18296001 (Version 1)
Quarter: 2020Q3

REPORT INFORMATION
  Report Type: Spontaneous
  Country: US (occurrence: CA)
  Receive Date: 20200922
  Receipt Date: 20200922
  Transmission Date: 20201103
  Serious: Yes (Hospitalization, Other)
  Sender: FDA-Public Use
  Company Number: US-BAYER-2020-192986

PATIENT
  Age: 62 Year
  Sex: Male

DRUGS (3)
  1. GOSERELIN [Suspect]
     Active Substance: GOSERELIN
     Indication: PROSTATE CANCER
     Dosage: UNK
  2. AMOXICILLIN AND CLAVULANATE POTASSIUM [AMOXICILLIN SODIUM;CLAVULAN [Concomitant]
     Indication: URETHRITIS
     Dosage: UNK
  3. CIPROFLOXACIN. [Suspect]
     Active Substance: CIPROFLOXACIN
     Indication: URETHRITIS
     Dosage: UNK

REACTIONS (5)
  - Metastases to bone [Not Recovered/Not Resolved]
  - Tinnitus [Not Recovered/Not Resolved]
  - Diverticulitis [Not Recovered/Not Resolved]
  - Sleep apnoea syndrome [Not Recovered/Not Resolved]
  - Prostatic specific antigen increased [Not Recovered/Not Resolved]
